FAERS Safety Report 4556853-X (Version None)
Quarter: 2005Q1

REPORT INFORMATION
  Report Type: 
  Country: None (occurrence: None)
  Receive Date: 20050119
  Receipt Date: 20050119
  Transmission Date: 20050727
  Serious: Yes (Hospitalization)
  Sender: FDA-Public Use
  Company Number: None

PATIENT
  Age: 48 Year
  Sex: Female
  Weight: 111.1313 kg

DRUGS (1)
  1. TAXOL [Suspect]

REACTIONS (2)
  - CORONARY ARTERY ANEURYSM [None]
  - MEDICAL DEVICE COMPLICATION [None]
